FAERS Safety Report 8009146-2 (Version None)
Quarter: 2011Q4

REPORT INFORMATION
  Report Type: 
  Country: None (occurrence: None)
  Receive Date: 20111227
  Receipt Date: 20111219
  Transmission Date: 20120403
  Serious: Yes (Death, Other)
  Sender: FDA-Public Use
  Company Number: PHHY2011NL63487

PATIENT
  Sex: Male

DRUGS (9)
  1. ZOMETA [Suspect]
     Indication: PROSTATE CANCER METASTATIC
     Dosage: 4 MG/5ML ONCE PER 28 DAYS (100ML NACL, 365 ML/HOUR)
     Dates: start: 20110126
  2. ZOMETA [Suspect]
     Dosage: 4 MG/5ML ONCE PER 28 DAYS (100ML NACL, 365 ML/HOUR)
     Dates: start: 20110713
  3. FINASTERIDE [Concomitant]
     Dosage: 5 MG, ONCE A DAY
  4. ZOMETA [Suspect]
     Dosage: 4 MG/5ML ONCE PER 28 DAYS (100ML NACL, 365 ML/HOUR)
     Dates: start: 20111129
  5. OMEPRAZOLE [Concomitant]
     Dosage: 20 MG, ONCE A DAY
  6. ZOMETA [Suspect]
     Dosage: 4 MG/5ML ONCE PER 28 DAYS (100ML NACL, 365 ML/HOUR)
     Dates: start: 20110615
  7. ZOMETA [Suspect]
     Dosage: 4 MG/5ML ONCE PER 28 DAYS (100ML NACL, 365 ML/HOUR)
     Dates: start: 20111101
  8. PREDNISONE TAB [Concomitant]
     Dosage: 5 MG, ONCE A DAY
  9. METOPROLOL SUCCINATE [Concomitant]
     Dosage: 50 MG,1 X 0.5

REACTIONS (7)
  - NEOPLASM MALIGNANT [None]
  - BONE PAIN [None]
  - FATIGUE [None]
  - PROSTATIC SPECIFIC ANTIGEN INCREASED [None]
  - DEATH [None]
  - NEOPLASM PROGRESSION [None]
  - PAIN [None]
